FAERS Safety Report 20772131 (Version 1)
Quarter: 2022Q2

REPORT INFORMATION
  Report Type: Spontaneous
  Country: US (occurrence: US)
  Receive Date: 20220502
  Receipt Date: 20220502
  Transmission Date: 20220721
  Serious: No
  Sender: FDA-Public Use
  Company Number: US-AMGEN-USASP2022071652

PATIENT
  Age: 78 Year
  Sex: Female

DRUGS (2)
  1. REPATHA [Suspect]
     Active Substance: EVOLOCUMAB
     Indication: Blood cholesterol increased
     Dosage: 140 MILLIGRAM, Q2WK
     Route: 065
     Dates: start: 202202
  2. WARFARIN [Concomitant]
     Active Substance: WARFARIN
     Indication: Antiphospholipid syndrome
     Dosage: UNK UNK, QD
     Route: 065

REACTIONS (4)
  - Device difficult to use [Unknown]
  - Fall [Unknown]
  - Lip injury [Unknown]
  - Injection site haemorrhage [Unknown]

NARRATIVE: CASE EVENT DATE: 20220415
